FAERS Safety Report 16994734 (Version 2)
Quarter: 2021Q2

REPORT INFORMATION
  Report Type: Report from Study
  Country: CA (occurrence: CA)
  Receive Date: 20191105
  Receipt Date: 20210621
  Transmission Date: 20210716
  Serious: Yes (Other)
  Sender: FDA-Public Use
  Company Number: CA-PFIZER INC-2796037

PATIENT
  Age: 58 Year
  Sex: Female
  Weight: 80 kg

DRUGS (22)
  1. ACTEMRA [Suspect]
     Active Substance: TOCILIZUMAB
     Indication: RHEUMATOID ARTHRITIS
     Dosage: 540 MG, 1 EVERY 4 WEEKS
     Route: 042
     Dates: start: 20120904
  2. ACTEMRA [Suspect]
     Active Substance: TOCILIZUMAB
     Dosage: UNK
  3. LEFLUNOMIDE GH [Concomitant]
  4. ACTEMRA [Suspect]
     Active Substance: TOCILIZUMAB
     Dosage: 540 MG, 1 EVERY 4 WEEKS
     Route: 042
     Dates: start: 20180808
  5. ACTEMRA [Suspect]
     Active Substance: TOCILIZUMAB
     Dosage: UNK
  6. ACTEMRA [Suspect]
     Active Substance: TOCILIZUMAB
     Dosage: 540 MG, 1 EVERY 4 WEEKS
     Route: 042
     Dates: start: 20151117
  7. ACTEMRA [Suspect]
     Active Substance: TOCILIZUMAB
     Dosage: 540 MG, 1 EVERY 4 WEEKS
     Route: 042
     Dates: start: 20160318
  8. ACTEMRA [Suspect]
     Active Substance: TOCILIZUMAB
     Dosage: UNK
  9. METHOTREXATE SODIUM. [Suspect]
     Active Substance: METHOTREXATE SODIUM
     Indication: RHEUMATOID ARTHRITIS
     Dosage: UNK
     Route: 058
     Dates: start: 20120905, end: 20141028
  10. ACTEMRA [Suspect]
     Active Substance: TOCILIZUMAB
     Dosage: 540 MG, 1 EVERY 4 WEEKS
     Route: 042
     Dates: start: 20160114
  11. ACTEMRA [Suspect]
     Active Substance: TOCILIZUMAB
     Dosage: 540 MG, 1 EVERY 4 WEEKS
     Route: 042
     Dates: start: 20160114
  12. ACTEMRA [Suspect]
     Active Substance: TOCILIZUMAB
     Dosage: 540 MG, 1 EVERY 4 WEEKS
     Route: 042
     Dates: start: 20160707
  13. FLURBIPROFEN. [Concomitant]
     Active Substance: FLURBIPROFEN
  14. ACTEMRA [Suspect]
     Active Substance: TOCILIZUMAB
     Dosage: 540 MG, 1 EVERY 4 WEEKS
     Route: 042
     Dates: start: 20151117
  15. ACTEMRA [Suspect]
     Active Substance: TOCILIZUMAB
     Dosage: UNK
  16. FOLIC ACID. [Concomitant]
     Active Substance: FOLIC ACID
     Indication: PRODUCT USED FOR UNKNOWN INDICATION
     Dosage: UNK
  17. ACTEMRA [Suspect]
     Active Substance: TOCILIZUMAB
     Dosage: 540 MG, 1 EVERY 4 WEEKS
     Route: 042
     Dates: start: 20120904
  18. ACTEMRA [Suspect]
     Active Substance: TOCILIZUMAB
     Dosage: 540 MG, 1 EVERY 4 WEEKS
     Route: 042
     Dates: start: 20150819
  19. ACTEMRA [Suspect]
     Active Substance: TOCILIZUMAB
     Dosage: 540 MG, 1 EVERY 4 WEEKS
     Route: 042
     Dates: start: 20160707
  20. ARAVA [Concomitant]
     Active Substance: LEFLUNOMIDE
     Indication: PRODUCT USED FOR UNKNOWN INDICATION
     Dosage: UNK
  21. PREDNISONE. [Concomitant]
     Active Substance: PREDNISONE
     Indication: PRODUCT USED FOR UNKNOWN INDICATION
     Dosage: UNK
  22. ACTEMRA [Suspect]
     Active Substance: TOCILIZUMAB
     Dosage: 540 MG, 1 EVERY 4 WEEKS
     Route: 042
     Dates: start: 20121119

REACTIONS (36)
  - Oropharyngeal pain [Not Recovered/Not Resolved]
  - Weight increased [Unknown]
  - Oedema peripheral [Not Recovered/Not Resolved]
  - Arthralgia [Not Recovered/Not Resolved]
  - Device infusion issue [Unknown]
  - Incorrect drug administration rate [Unknown]
  - Infection [Recovered/Resolved]
  - Influenza like illness [Not Recovered/Not Resolved]
  - Sinus congestion [Not Recovered/Not Resolved]
  - Device leakage [Unknown]
  - Sputum discoloured [Not Recovered/Not Resolved]
  - Blood pressure systolic increased [Unknown]
  - Nausea [Unknown]
  - Musculoskeletal stiffness [Not Recovered/Not Resolved]
  - Lymph gland infection [Unknown]
  - Poor venous access [Unknown]
  - Rash [Recovered/Resolved]
  - Abdominal pain [Unknown]
  - Oxygen saturation decreased [Unknown]
  - Weight decreased [Unknown]
  - Tooth loss [Unknown]
  - Body temperature decreased [Unknown]
  - Arthritis [Not Recovered/Not Resolved]
  - Joint stiffness [Not Recovered/Not Resolved]
  - Nasopharyngitis [Recovering/Resolving]
  - Thyroid cyst [Not Recovered/Not Resolved]
  - Accidental exposure to product [Unknown]
  - Cough [Not Recovered/Not Resolved]
  - Blood pressure increased [Unknown]
  - Lymphadenopathy [Not Recovered/Not Resolved]
  - Mass [Not Recovered/Not Resolved]
  - Blood pressure diastolic abnormal [Unknown]
  - Oxygen saturation decreased [Unknown]
  - Pain [Not Recovered/Not Resolved]
  - Peripheral swelling [Unknown]
  - Swelling [Not Recovered/Not Resolved]

NARRATIVE: CASE EVENT DATE: 20120906
